FAERS Safety Report 16156745 (Version 2)
Quarter: 2019Q2

REPORT INFORMATION
  Report Type: Spontaneous
  Country: AT (occurrence: AT)
  Receive Date: 20190404
  Receipt Date: 20190404
  Transmission Date: 20190711
  Serious: Yes (Other)
  Sender: FDA-Public Use
  Company Number: PHHY2019AT074539

PATIENT
  Age: 33 Year
  Sex: Male

DRUGS (5)
  1. AZATHIOPRINE. [Suspect]
     Active Substance: AZATHIOPRINE
     Indication: CROHN^S DISEASE
     Dosage: 2 MG/KG, QD
     Route: 065
     Dates: start: 2002
  2. CIPROFLOXACIN. [Suspect]
     Active Substance: CIPROFLOXACIN
     Indication: CROHN^S DISEASE
     Dosage: UNK
     Route: 065
     Dates: start: 200306
  3. METRONIDAZOLE. [Suspect]
     Active Substance: METRONIDAZOLE
     Indication: CROHN^S DISEASE
     Dosage: UNK
     Route: 065
     Dates: start: 200306
  4. PREDNISONE. [Suspect]
     Active Substance: PREDNISONE
     Indication: CROHN^S DISEASE
     Dosage: 12.5 MG, QD
     Route: 065
     Dates: start: 1992
  5. PREDNISONE. [Suspect]
     Active Substance: PREDNISONE
     Dosage: 50 MG, QD
     Route: 065
     Dates: start: 200306

REACTIONS (7)
  - Abdominal pain [Unknown]
  - Product use in unapproved indication [Unknown]
  - Vomiting [Unknown]
  - Abdominal distension [Unknown]
  - Small intestine adenocarcinoma [Unknown]
  - Malabsorption [Unknown]
  - Anaemia [Unknown]

NARRATIVE: CASE EVENT DATE: 200306
